FAERS Safety Report 19557624 (Version 1)
Quarter: 2021Q3

REPORT INFORMATION
  Report Type: Spontaneous
  Country: FR (occurrence: FR)
  Receive Date: 20210715
  Receipt Date: 20210715
  Transmission Date: 20211014
  Serious: Yes (Hospitalization)
  Sender: FDA-Public Use
  Company Number: FR-TEVA-2021-FR-1932218

PATIENT
  Age: 81 Year
  Sex: Male
  Weight: 65 kg

DRUGS (2)
  1. RALTITREXED [Suspect]
     Active Substance: RALTITREXED
     Indication: COLON CANCER METASTATIC
     Dosage: 4 MG
     Route: 042
     Dates: start: 20210317
  2. OXALIPLATINE [Suspect]
     Active Substance: OXALIPLATIN
     Indication: COLON CANCER METASTATIC
     Dosage: 175 MG
     Route: 042
     Dates: start: 20210317

REACTIONS (1)
  - Immune thrombocytopenia [Recovering/Resolving]

NARRATIVE: CASE EVENT DATE: 20210509
